FAERS Safety Report 7994883-6 (Version None)
Quarter: 2011Q4

REPORT INFORMATION
  Report Type: 
  Country: None (occurrence: None)
  Receive Date: 20111220
  Receipt Date: 20111214
  Transmission Date: 20120403
  Serious: Yes (Hospitalization)
  Sender: FDA-Public Use
  Company Number: FR-ROCHE-1022062

PATIENT
  Sex: Male

DRUGS (3)
  1. EVEROLIMUS [Suspect]
     Indication: TRANSPLANT REJECTION
     Dates: start: 20110905
  2. PREDNISONE TAB [Suspect]
     Indication: TRANSPLANT REJECTION
     Route: 002
     Dates: start: 20110907
  3. MYCOPHENOLATE MOFETIL (CELLCEPT) [Suspect]
     Indication: TRANSPLANT REJECTION
     Route: 002
     Dates: start: 20110831

REACTIONS (2)
  - BIOPSY KIDNEY ABNORMAL [None]
  - TRANSPLANT REJECTION [None]
